FAERS Safety Report 5302215-7 (Version None)
Quarter: 2007Q1

REPORT INFORMATION
  Report Type: 
  Country: None (occurrence: None)
  Receive Date: 20070201
  Receipt Date: 20061215
  Transmission Date: 20070707
  Serious: No
  Sender: FDA-Public Use
  Company Number: 2006PV026992

PATIENT
  Age: 55 Year
  Sex: Female
  Weight: 88.905 kg

DRUGS (8)
  1. BYETTA [Suspect]
     Indication: INSULIN RESISTANCE
     Dosage: SEE IMAGE
     Route: 058
     Dates: start: 20060301, end: 20060601
  2. BYETTA [Suspect]
     Indication: INSULIN RESISTANCE
     Dosage: SEE IMAGE
     Route: 058
     Dates: start: 20060601
  3. SPORANOX [Suspect]
     Indication: BACTERIAL INFECTION
     Dates: start: 20061001
  4. GLUCOPHAGE [Suspect]
     Indication: DIABETES MELLITUS
     Dates: start: 20060101, end: 20061001
  5. GLIPIZIDE [Concomitant]
  6. COMPOUNDED MEDICATION OF THYROID [Concomitant]
  7. LEVAQUIN [Concomitant]
  8. VANCOMYCIN [Concomitant]

REACTIONS (13)
  - BLOOD GLUCOSE DECREASED [None]
  - BLOOD GLUCOSE INCREASED [None]
  - BODY TEMPERATURE INCREASED [None]
  - DRUG INTERACTION [None]
  - DYSPNOEA [None]
  - EXERCISE TOLERANCE DECREASED [None]
  - FEELING ABNORMAL [None]
  - HEADACHE [None]
  - NAUSEA [None]
  - PITTING OEDEMA [None]
  - SINUSITIS [None]
  - STAPHYLOCOCCAL INFECTION [None]
  - WEIGHT DECREASED [None]
